FAERS Safety Report 23980200 (Version 1)
Quarter: 2024Q2

REPORT INFORMATION
  Report Type: Spontaneous
  Country: TN (occurrence: TN)
  Receive Date: 20240617
  Receipt Date: 20240617
  Transmission Date: 20240716
  Serious: Yes (Death, Other)
  Sender: FDA-Public Use
  Company Number: TN-CELLTRION INC.-2024TN014237

PATIENT

DRUGS (5)
  1. INFLIXIMAB [Suspect]
     Active Substance: INFLIXIMAB
     Indication: Crohn^s disease
     Dosage: INFLIXIMAB PERFUSION
     Dates: start: 201711
  2. INFLIXIMAB [Suspect]
     Active Substance: INFLIXIMAB
     Dosage: 10 MG/KG/8 WEEKS
     Dates: start: 201905
  3. INFLIXIMAB [Suspect]
     Active Substance: INFLIXIMAB
     Dosage: INFLIXIMAB CONTINUED
     Route: 042
     Dates: start: 202010
  4. INFLIXIMAB [Suspect]
     Active Substance: INFLIXIMAB
     Dosage: TOTAL OF 51 COURSES
  5. AZATHIOPRINE [Suspect]
     Active Substance: AZATHIOPRINE
     Indication: Crohn^s disease
     Dosage: 2.5 MG/KG/J
     Dates: start: 200612, end: 202010

REACTIONS (2)
  - Squamous cell carcinoma of skin [Fatal]
  - Groin abscess [Unknown]

NARRATIVE: CASE EVENT DATE: 20220601
